FAERS Safety Report 23463893 (Version 3)
Quarter: 2024Q2

REPORT INFORMATION
  Report Type: Spontaneous
  Country: DE (occurrence: DE)
  Receive Date: 20240201
  Receipt Date: 20240410
  Transmission Date: 20240716
  Serious: Yes (Other)
  Sender: FDA-Public Use
  Company Number: DE-JNJFOC-20240163245

PATIENT
  Age: 68 Year
  Sex: Female

DRUGS (5)
  1. STELARA [Suspect]
     Active Substance: USTEKINUMAB
     Indication: Inflammatory bowel disease
     Route: 058
     Dates: start: 201706
  2. INFLIXIMAB [Concomitant]
     Active Substance: INFLIXIMAB
  3. RISANKIZUMAB [Concomitant]
     Active Substance: RISANKIZUMAB
     Dates: start: 202310
  4. BUDESONIDE [Concomitant]
     Active Substance: BUDESONIDE
  5. MATRIX [IBUPROFEN] [Concomitant]
     Dosage: 3 COURSES MATRIX
     Dates: start: 202307

REACTIONS (5)
  - Diffuse large B-cell lymphoma [Unknown]
  - Renal failure [Unknown]
  - Crohn^s disease [Unknown]
  - Female genital tract fistula [Unknown]
  - Headache [Unknown]

NARRATIVE: CASE EVENT DATE: 20220501
